FAERS Safety Report 20840910 (Version 1)
Quarter: 2022Q2

REPORT INFORMATION
  Report Type: Spontaneous
  Country: US (occurrence: None)
  Receive Date: 20220517
  Receipt Date: 20220517
  Transmission Date: 20220721
  Serious: No
  Sender: FDA-Public Use
  Company Number: None

PATIENT
  Age: 24 Year
  Sex: Female
  Weight: 52.2 kg

DRUGS (1)
  1. DG HEALTH DAY TIME SEVERE COLD AND FLU RELIEF [Suspect]
     Active Substance: ACETAMINOPHEN\DEXTROMETHORPHAN HYDROBROMIDE\GUAIFENESIN\PHENYLEPHRINE HYDROCHLORIDE
     Indication: Nasopharyngitis
     Dosage: FREQUENCY : EVERY 4 HOURS;?
     Route: 048
     Dates: start: 20220517, end: 20220517

REACTIONS (6)
  - Dizziness [None]
  - Vision blurred [None]
  - Vestibular disorder [None]
  - Diarrhoea [None]
  - Nausea [None]
  - Suspected product quality issue [None]

NARRATIVE: CASE EVENT DATE: 20220517
